FAERS Safety Report 12986988 (Version 2)
Quarter: 2017Q1

REPORT INFORMATION
  Report Type: Spontaneous
  Country: US (occurrence: US)
  Receive Date: 20161130
  Receipt Date: 20170118
  Transmission Date: 20170428
  Serious: No
  Sender: FDA-Public Use
  Company Number: US-PFIZER INC-2016549988

PATIENT
  Age: 69 Year
  Sex: Male
  Weight: 68 kg

DRUGS (2)
  1. LATANOPROST. [Suspect]
     Active Substance: LATANOPROST
     Dosage: 2 GTT, DAILY (2.5ML/0.005% ONE DROP IN EACH EYE EVERY NIGHT)
  2. LATANOPROST. [Suspect]
     Active Substance: LATANOPROST
     Indication: INTRAOCULAR PRESSURE TEST ABNORMAL
     Dosage: 2 GTT, DAILY (2.5ML/0.005% ONE DROP IN EACH EYE EVERY NIGHT)

REACTIONS (5)
  - Product quality issue [Unknown]
  - Product dropper issue [Unknown]
  - Vision blurred [Recovered/Resolved]
  - Drug dose omission [Unknown]
  - Halo vision [Unknown]
